FAERS Safety Report 16155386 (Version 3)
Quarter: 2019Q2

REPORT INFORMATION
  Report Type: Report from Study
  Country: US (occurrence: US)
  Receive Date: 20190403
  Receipt Date: 20190412
  Transmission Date: 20190711
  Serious: Yes (Other)
  Sender: FDA-Public Use
  Company Number: US-ALEXION PHARMACEUTICALS INC-A201904844

PATIENT
  Age: 49 Year
  Sex: Male

DRUGS (2)
  1. SOLIRIS [Suspect]
     Active Substance: ECULIZUMAB
     Indication: ATYPICAL HAEMOLYTIC URAEMIC SYNDROME
     Dosage: UNK
     Route: 065
  2. SOLIRIS [Suspect]
     Active Substance: ECULIZUMAB
     Dosage: 1200 MG, Q 14 DAYS
     Route: 042

REACTIONS (14)
  - Suicidal ideation [Unknown]
  - Deep vein thrombosis [Recovered/Resolved]
  - Cholelithiasis [Unknown]
  - Bone disorder [Unknown]
  - Oedema [Unknown]
  - Platelet count decreased [Unknown]
  - Anaemia [Unknown]
  - Type V hyperlipidaemia [Unknown]
  - Generalised anxiety disorder [Unknown]
  - Blood urea increased [Unknown]
  - Hypertension [Unknown]
  - Fatigue [Unknown]
  - Gastrooesophageal reflux disease [Unknown]
  - Endotracheal intubation [Unknown]

NARRATIVE: CASE EVENT DATE: 20190228
